FAERS Safety Report 24737081 (Version 1)
Quarter: 2024Q4

REPORT INFORMATION
  Report Type: Other
  Country: US (occurrence: US)
  Receive Date: 20241216
  Receipt Date: 20241216
  Transmission Date: 20250115
  Serious: Yes (Other)
  Sender: ANI
  Company Number: US-ANIPHARMA-014035

PATIENT
  Age: 2 Year
  Sex: Male

DRUGS (5)
  1. CYCLOPHOSPHAMIDE [Suspect]
     Active Substance: CYCLOPHOSPHAMIDE
     Indication: Retinoblastoma
     Dates: start: 202209
  2. CISPLATIN [Concomitant]
     Active Substance: CISPLATIN
     Indication: Retinoblastoma
     Dates: start: 202209
  3. VINCRISTINE [Concomitant]
     Active Substance: VINCRISTINE
     Indication: Retinoblastoma
     Dates: start: 202209
  4. TOPOTECAN [Concomitant]
     Active Substance: TOPOTECAN HYDROCHLORIDE
     Indication: Retinoblastoma
     Dates: start: 202211
  5. MELPHALAN [Concomitant]
     Active Substance: MELPHALAN
     Indication: Retinoblastoma
     Dates: start: 202212

REACTIONS (1)
  - Cytomegalovirus chorioretinitis [Recovering/Resolving]
